FAERS Safety Report 19281486 (Version 1)
Quarter: 2021Q2

REPORT INFORMATION
  Report Type: Spontaneous
  Country: US (occurrence: US)
  Receive Date: 20210521
  Receipt Date: 20210521
  Transmission Date: 20210717
  Serious: Yes (Other)
  Sender: FDA-Public Use
  Company Number: US-NOVOPROD-810846

PATIENT
  Age: 56 Year
  Sex: Female

DRUGS (1)
  1. OZEMPIC [Suspect]
     Active Substance: SEMAGLUTIDE
     Indication: PRODUCT USED FOR UNKNOWN INDICATION
     Dosage: 0.25 MG, QW
     Route: 058
     Dates: start: 202101, end: 202104

REACTIONS (13)
  - Parosmia [Recovering/Resolving]
  - Dysgeusia [Recovering/Resolving]
  - Aggression [Unknown]
  - Solar lentigo [Unknown]
  - Liver injury [Unknown]
  - Hunger [Unknown]
  - Skin ulcer [Unknown]
  - Thyroidectomy [Unknown]
  - Mania [Unknown]
  - Post procedural hypothyroidism [Unknown]
  - Palpitations [Unknown]
  - Nonalcoholic fatty liver disease [Unknown]
  - Malabsorption [Unknown]

NARRATIVE: CASE EVENT DATE: 2021
